FAERS Safety Report 10507684 (Version 2)
Quarter: 2014Q4

REPORT INFORMATION
  Report Type: Spontaneous
  Country: US (occurrence: US)
  Receive Date: 20141009
  Receipt Date: 20141203
  Transmission Date: 20150528
  Serious: Yes (Hospitalization, Other)
  Sender: FDA-Public Use
  Company Number: US-ABBVIE-14P-163-1289708-00

PATIENT
  Age: 49 Year

DRUGS (1)
  1. ANDROGEL [Suspect]
     Active Substance: TESTOSTERONE
     Indication: BLOOD TESTOSTERONE DECREASED
     Route: 062
     Dates: start: 20091105, end: 20140206

REACTIONS (12)
  - Fear [Unknown]
  - Anxiety [Unknown]
  - Economic problem [Unknown]
  - Pulmonary embolism [Unknown]
  - Cardiovascular disorder [Unknown]
  - Impaired work ability [Unknown]
  - Anhedonia [Unknown]
  - Lung disorder [Unknown]
  - Pain [Unknown]
  - Social problem [Unknown]
  - Loss of employment [Unknown]
  - Injury [Unknown]

NARRATIVE: CASE EVENT DATE: 20100219
